FAERS Safety Report 4964845-1 (Version None)
Quarter: 2006Q2

REPORT INFORMATION
  Report Type: 
  Country: None (occurrence: None)
  Receive Date: 20060406
  Receipt Date: 20060331
  Transmission Date: 20061013
  Serious: Yes (Other)
  Sender: FDA-Public Use
  Company Number: US-GLAXOSMITHKLINE-A0600305A

PATIENT
  Age: 41 Year
  Sex: Male

DRUGS (1)
  1. NICODERM CQ [Suspect]
     Indication: SMOKING CESSATION THERAPY
     Route: 062
     Dates: start: 20060301

REACTIONS (7)
  - ANGINA PECTORIS [None]
  - APPLICATION SITE ERYTHEMA [None]
  - DRUG INEFFECTIVE [None]
  - EUPHORIC MOOD [None]
  - LOGORRHOEA [None]
  - NICOTINE DEPENDENCE [None]
  - PAIN IN EXTREMITY [None]
